FAERS Safety Report 21411055 (Version 1)
Quarter: 2022Q4

REPORT INFORMATION
  Report Type: Report from Study
  Country: US (occurrence: US)
  Receive Date: 20221005
  Receipt Date: 20221005
  Transmission Date: 20230113
  Serious: Yes (Hospitalization, Other)
  Sender: FDA-Public Use
  Company Number: US-ABBVIE-4138818

PATIENT
  Sex: Female

DRUGS (2)
  1. IMBRUVICA [Suspect]
     Active Substance: IBRUTINIB
     Indication: Waldenstrom^s macroglobulinaemia
     Route: 048
  2. IMBRUVICA [Suspect]
     Active Substance: IBRUTINIB
     Indication: Waldenstrom^s macroglobulinaemia
     Route: 048

REACTIONS (9)
  - Memory impairment [Unknown]
  - Sleep apnoea syndrome [Unknown]
  - Skin ulcer [Unknown]
  - Feeling abnormal [Unknown]
  - Arthritis [Unknown]
  - Hip fracture [Unknown]
  - Contusion [Unknown]
  - Asthenia [Unknown]
  - Osteoarthritis [Unknown]
